FAERS Safety Report 5093137-8 (Version None)
Quarter: 2006Q3

REPORT INFORMATION
  Report Type: 
  Country: None (occurrence: None)
  Receive Date: 20060828
  Receipt Date: 20060811
  Transmission Date: 20061208
  Serious: Yes (Hospitalization)
  Sender: FDA-Public Use
  Company Number: VER_0019_2006

PATIENT
  Age: 44 Year
  Sex: Male

DRUGS (1)
  1. TWINJECT [Suspect]
     Indication: ANAPHYLACTIC REACTION
     Dosage: 1 DF ONCE SC
     Route: 058

REACTIONS (3)
  - DEVICE MALFUNCTION [None]
  - DRUG INEFFECTIVE [None]
  - PHARMACEUTICAL PRODUCT COMPLAINT [None]
